FAERS Safety Report 9902295 (Version 2)
Quarter: 2014Q1

REPORT INFORMATION
  Report Type: Spontaneous
  Country: JP (occurrence: JP)
  Receive Date: 20140217
  Receipt Date: 20140224
  Transmission Date: 20141002
  Serious: Yes (Hospitalization)
  Sender: FDA-Public Use
  Company Number: JP-PFIZER INC-2014041708

PATIENT
  Sex: Female

DRUGS (1)
  1. INLYTA [Suspect]
     Route: 048

REACTIONS (1)
  - Palmar-plantar erythrodysaesthesia syndrome [Recovering/Resolving]
